FAERS Safety Report 5476486-0 (Version None)
Quarter: 2007Q3

REPORT INFORMATION
  Report Type: 
  Country: None (occurrence: None)
  Receive Date: 20070904
  Receipt Date: 20070613
  Transmission Date: 20080115
  Serious: No
  Sender: FDA-Public Use
  Company Number: PHEH2007US08748

PATIENT
  Age: 65 Year
  Sex: Female
  Weight: 65.3 kg

DRUGS (1)
  1. ENABLEX [Suspect]
     Indication: POLLAKIURIA
     Dosage: 7.5 MG, QD, ORAL
     Route: 048
     Dates: start: 20061101

REACTIONS (4)
  - CONSTIPATION [None]
  - DRY EYE [None]
  - VISION BLURRED [None]
  - WEIGHT INCREASED [None]
